FAERS Safety Report 7598636-2 (Version None)
Quarter: 2011Q3

REPORT INFORMATION
  Report Type: 
  Country: None (occurrence: None)
  Receive Date: 20110711
  Receipt Date: 20110629
  Transmission Date: 20111222
  Serious: Yes (Hospitalization)
  Sender: FDA-Public Use
  Company Number: JP-BRISTOL-MYERS SQUIBB COMPANY-15875115

PATIENT
  Age: 85 Year
  Sex: Female

DRUGS (10)
  1. LANSOPRAZOLE [Concomitant]
  2. EBRANTIL [Concomitant]
  3. SLOW-K [Concomitant]
  4. TANATRIL [Concomitant]
  5. AVAPRO [Suspect]
     Indication: HYPERTENSION
     Route: 048
     Dates: start: 20100414, end: 20101101
  6. NATEGLINIDE [Concomitant]
  7. ADALAT CC [Concomitant]
  8. EPLERENONE [Concomitant]
  9. ASPIRIN [Concomitant]
  10. LIPIDIL [Concomitant]

REACTIONS (3)
  - HYPERTENSION [None]
  - HYPOKALAEMIA [None]
  - NEPHROTIC SYNDROME [None]
